FAERS Safety Report 20601381 (Version 2)
Quarter: 2022Q2

REPORT INFORMATION
  Report Type: Spontaneous
  Country: US (occurrence: US)
  Receive Date: 20220316
  Receipt Date: 20220426
  Transmission Date: 20220720
  Serious: No
  Sender: FDA-Public Use
  Company Number: US-NOVARTISTESTPH-NVSC2022US056499

PATIENT
  Sex: Female
  Weight: 47 kg

DRUGS (5)
  1. CRIZANLIZUMAB [Suspect]
     Active Substance: CRIZANLIZUMAB
     Indication: Sickle cell disease
     Dosage: UNK
     Route: 042
  2. CRIZANLIZUMAB [Suspect]
     Active Substance: CRIZANLIZUMAB
     Dosage: 200 MG, QMO
     Route: 042
     Dates: end: 20220205
  3. DEFERASIROX [Concomitant]
     Active Substance: DEFERASIROX
     Indication: Product used for unknown indication
     Dosage: 200 MG, QD
     Route: 048
     Dates: start: 20220307
  4. FOLIC ACID [Concomitant]
     Active Substance: FOLIC ACID
     Indication: Sickle cell disease
     Dosage: 1 MG, QD
     Route: 048
  5. OXYCODONE [Concomitant]
     Active Substance: OXYCODONE
     Indication: Pain
     Dosage: 10 MG, PRN
     Route: 048

REACTIONS (1)
  - Maternal exposure during pregnancy [Unknown]
